FAERS Safety Report 21140183 (Version 1)
Quarter: 2022Q3

REPORT INFORMATION
  Report Type: Spontaneous
  Country: JP (occurrence: JP)
  Receive Date: 20220728
  Receipt Date: 20220728
  Transmission Date: 20221027
  Serious: Yes (Hospitalization, Other)
  Sender: FDA-Public Use
  Company Number: JP-NOVARTISPH-NVSC2022JP169863

PATIENT
  Age: 8 Decade
  Sex: Male

DRUGS (1)
  1. RIVASTIGMINE [Suspect]
     Active Substance: RIVASTIGMINE
     Indication: Dementia Alzheimer^s type
     Dosage: UNK, TAPE (INCLUDING POULTICE)
     Route: 062

REACTIONS (6)
  - Subarachnoid haemorrhage [Unknown]
  - Subdural haemorrhage [Unknown]
  - Traumatic haemothorax [Unknown]
  - Haemorrhage [Unknown]
  - Contusion [Unknown]
  - Application site pruritus [Unknown]
